FAERS Safety Report 5053397-6 (Version None)
Quarter: 2006Q2

REPORT INFORMATION
  Report Type: 
  Country: None (occurrence: None)
  Receive Date: 20060614
  Receipt Date: 20060223
  Transmission Date: 20061013
  Serious: Yes (Other)
  Sender: FDA-Public Use
  Company Number: 436394

PATIENT
  Age: 64 Year
  Sex: Female

DRUGS (3)
  1. BONIVA [Suspect]
     Indication: OSTEOPOROSIS
     Dosage: 150 MG 1 PER MONTH ORAL
     Route: 048
     Dates: start: 20060201, end: 20060201
  2. NEURONTIN [Concomitant]
  3. SLEEPING PILL NOS (HYPNOTIC NOS) [Concomitant]

REACTIONS (2)
  - BACK PAIN [None]
  - MYALGIA [None]
